FAERS Safety Report 19458196 (Version 9)
Quarter: 2021Q4

REPORT INFORMATION
  Report Type: Spontaneous
  Country: GB (occurrence: GB)
  Receive Date: 20210624
  Receipt Date: 20211102
  Transmission Date: 20220303
  Serious: Yes (Life-Threatening, Hospitalization, Other)
  Sender: FDA-Public Use
  Company Number: None

PATIENT
  Age: 66 Year
  Sex: Male
  Weight: 77.4 kg

DRUGS (10)
  1. DICLOFENAC [Suspect]
     Active Substance: DICLOFENAC
     Indication: Pain
     Dosage: 50 MG, TID (50 MG, 3X/DAY)
     Route: 048
  2. DICLOFENAC [Suspect]
     Active Substance: DICLOFENAC
     Dosage: 50 MG, TID (50 MG, 3X/DAY)
     Route: 048
  3. DICLOFENAC [Suspect]
     Active Substance: DICLOFENAC
     Dosage: 50 MG, TID (50 MG, 3X/DAY)
     Route: 048
     Dates: start: 20040304, end: 20040413
  4. DICLOFENAC [Suspect]
     Active Substance: DICLOFENAC
     Dosage: 50 MG, TID (50 MG, 3X/DAY)
     Route: 048
  5. DICLOFENAC [Suspect]
     Active Substance: DICLOFENAC
     Dosage: 50 MG, TID (50 MG, 3X/DAY)
     Route: 048
  6. DICLOFENAC [Suspect]
     Active Substance: DICLOFENAC
     Dosage: 50 MG
     Route: 048
  7. TYKERB [Suspect]
     Active Substance: LAPATINIB DITOSYLATE
     Indication: Squamous cell carcinoma of head and neck
     Dosage: 500 MG THERAPY END FLAG: NOT APPLICABLE
     Route: 048
     Dates: start: 20040304, end: 20040313
  8. CISPLATIN [Suspect]
     Active Substance: CISPLATIN
     Indication: Squamous cell carcinoma of head and neck
     Dosage: 100 MG/M2, THERAPY END FLAG: DRUG STILL BEING
     Route: 042
     Dates: start: 20040311
  9. CISPLATIN [Suspect]
     Active Substance: CISPLATIN
     Dosage: 200 MG
     Route: 042
  10. DEXAMETHASONE [Suspect]
     Active Substance: DEXAMETHASONE
     Indication: Nausea
     Dosage: 2 MG, TID (2 MG, 3X/DAY)
     Route: 048
     Dates: start: 20040311, end: 20040314

REACTIONS (3)
  - Duodenal ulcer perforation [Recovered/Resolved]
  - Haematemesis [Unknown]
  - Abdominal pain [Unknown]

NARRATIVE: CASE EVENT DATE: 20040314
